FAERS Safety Report 17471323 (Version 3)
Quarter: 2020Q1

REPORT INFORMATION
  Report Type: Spontaneous
  Country: DE (occurrence: DE)
  Receive Date: 20200227
  Receipt Date: 20200323
  Transmission Date: 20200409
  Serious: Yes (Hospitalization, Other)
  Sender: FDA-Public Use
  Company Number: DE-AUROBINDO-AUR-APL-2020-009590

PATIENT
  Age: 94 Year
  Sex: Male

DRUGS (4)
  1. RAMIPRIL. [Suspect]
     Active Substance: RAMIPRIL
     Indication: HYPERTENSION
     Dosage: UNK
     Route: 065
     Dates: start: 2001
  2. RAMIPRIL. [Suspect]
     Active Substance: RAMIPRIL
     Dosage: 2.5 MILLIGRAM, (1 DF IN THE MORNING AND 1 DF OR 2 DF IN THE EVENING DEPENDING ON BLOOD PRESSURE)
     Route: 065
     Dates: start: 2001, end: 20190719
  3. DELIX (RAMIPRIL) [Suspect]
     Active Substance: RAMIPRIL
     Indication: HYPERTENSION
     Dosage: UNK
     Route: 065
     Dates: start: 2001
  4. METOPROLOL. [Suspect]
     Active Substance: METOPROLOL
     Indication: HYPERTENSION
     Dosage: UNK
     Route: 065
     Dates: start: 2001

REACTIONS (29)
  - Fall [Recovered/Resolved]
  - Insomnia [Unknown]
  - Incontinence [Recovering/Resolving]
  - Macular degeneration [Recovering/Resolving]
  - Myocardial infarction [Unknown]
  - Peripheral vascular disorder [Recovering/Resolving]
  - Congestive cardiomyopathy [Unknown]
  - Amnesia [Recovering/Resolving]
  - Pulmonary oedema [Recovered/Resolved]
  - Memory impairment [Recovering/Resolving]
  - Fatigue [Unknown]
  - Hypertension [Recovered/Resolved]
  - Cardiac failure [Recovering/Resolving]
  - Vertigo [Unknown]
  - Arrhythmia [Recovering/Resolving]
  - Prostatic disorder [Recovering/Resolving]
  - Left ventricular dysfunction [Recovering/Resolving]
  - Polyneuropathy [Not Recovered/Not Resolved]
  - Drug ineffective [Unknown]
  - Atrial fibrillation [Unknown]
  - Coronary artery disease [Unknown]
  - Gait inability [Not Recovered/Not Resolved]
  - Retinal detachment [Unknown]
  - PO2 [Unknown]
  - Ventricular extrasystoles [Unknown]
  - Lumbar vertebral fracture [Unknown]
  - Oedema peripheral [Recovered/Resolved]
  - Gait disturbance [Not Recovered/Not Resolved]
  - Renal cyst [Unknown]

NARRATIVE: CASE EVENT DATE: 2016
